FAERS Safety Report 7341822-7 (Version None)
Quarter: 2011Q1

REPORT INFORMATION
  Report Type: 
  Country: None (occurrence: None)
  Receive Date: 20110309
  Receipt Date: 20110209
  Transmission Date: 20110831
  Serious: No
  Sender: FDA-Public Use
  Company Number: US-B.I. PHARMACEUTICALS,INC./RIDGEFIELD-2011-BP-02602BP

PATIENT
  Sex: Female

DRUGS (8)
  1. SIMVASTATIN [Concomitant]
  2. TEKTURNA [Concomitant]
  3. PAXIL [Concomitant]
  4. HYDROLEUNE [Concomitant]
  5. MICARDIS [Suspect]
     Indication: HYPERTENSION
     Dosage: 40 MG
     Route: 048
     Dates: start: 20101015
  6. INSULIN [Concomitant]
  7. METOPROLOL [Concomitant]
     Indication: HYPERTENSION
  8. LIPITOR [Concomitant]

REACTIONS (2)
  - HYPERTENSION [None]
  - BLOOD PRESSURE FLUCTUATION [None]
